FAERS Safety Report 4526832-7 (Version None)
Quarter: 2004Q4

REPORT INFORMATION
  Report Type: 
  Country: None (occurrence: None)
  Receive Date: 20041213
  Receipt Date: 20041129
  Transmission Date: 20050328
  Serious: Yes (Hospitalization)
  Sender: FDA-Public Use
  Company Number: 2004105392

PATIENT
  Age: 66 Year
  Sex: Male

DRUGS (1)
  1. BEXTRA [Suspect]
     Indication: ARTHRALGIA

REACTIONS (3)
  - BLISTER [None]
  - RASH MACULO-PAPULAR [None]
  - RASH PRURITIC [None]
